FAERS Safety Report 5963616-7 (Version None)
Quarter: 2008Q4

REPORT INFORMATION
  Report Type: 
  Country: None (occurrence: None)
  Receive Date: 20081124
  Receipt Date: 20081111
  Transmission Date: 20090506
  Serious: Yes (Other)
  Sender: FDA-Public Use
  Company Number: JP-ROCHE-597749

PATIENT
  Age: 63 Year
  Sex: Female

DRUGS (2)
  1. PEGASYS [Suspect]
     Indication: HEPATITIS C
     Route: 058
     Dates: start: 20080507, end: 20080618
  2. PEGASYS [Suspect]
     Dosage: DECREASED DOSAGE
     Route: 058
     Dates: start: 20080702, end: 20081015

REACTIONS (1)
  - DIPLOPIA [None]
